FAERS Safety Report 9779716 (Version 1)
Quarter: 2013Q4

REPORT INFORMATION
  Report Type: Spontaneous
  Country: US (occurrence: US)
  Receive Date: 20131223
  Receipt Date: 20131223
  Transmission Date: 20140711
  Serious: Yes (Hospitalization, Other)
  Sender: FDA-Public Use
  Company Number: SE-BRISTOL-MYERS SQUIBB COMPANY-19921089

PATIENT
  Age: 39 Year
  Sex: Female

DRUGS (1)
  1. BYDUREON [Suspect]
     Dosage: TOOK 2MG  DOSE FOR 6 DAYS
     Dates: start: 20131204, end: 20131209

REACTIONS (3)
  - Hypoglycaemia [Recovered/Resolved]
  - Drug administration error [Unknown]
  - Overdose [Unknown]
